FAERS Safety Report 5058252-3 (Version None)
Quarter: 2006Q2

REPORT INFORMATION
  Report Type: 
  Country: None (occurrence: None)
  Receive Date: 20060622
  Receipt Date: 20060113
  Transmission Date: 20061013
  Serious: Yes (Hospitalization)
  Sender: FDA-Public Use
  Company Number: US-JNJFOC-20060103173

PATIENT
  Age: 44 Year
  Sex: Male
  Weight: 78.0187 kg

DRUGS (2)
  1. FENTANYL [Suspect]
     Indication: PAIN
     Dosage: SEE IMAGE
     Route: 062
     Dates: start: 20050201, end: 20060103
  2. FENTANYL [Suspect]
     Indication: PAIN
     Dosage: SEE IMAGE
     Route: 062
     Dates: start: 20060112

REACTIONS (2)
  - BACK PAIN [None]
  - DRUG WITHDRAWAL SYNDROME [None]
